FAERS Safety Report 9780848 (Version 3)
Quarter: 2014Q1

REPORT INFORMATION
  Report Type: Spontaneous
  Country: DE (occurrence: DE)
  Receive Date: 20131224
  Receipt Date: 20140128
  Transmission Date: 20141002
  Serious: Yes (Hospitalization)
  Sender: FDA-Public Use
  Company Number: PHHY2013DE150242

PATIENT
  Sex: Female
  Weight: 97 kg

DRUGS (7)
  1. GILENYA [Suspect]
     Indication: RELAPSING-REMITTING MULTIPLE SCLEROSIS
     Dosage: 0.5 MG, QD
     Route: 048
     Dates: start: 201210, end: 201312
  2. GILENYA [Suspect]
     Dosage: 0.5 MG, QOD
     Route: 048
     Dates: start: 20131206
  3. LYRICA [Concomitant]
     Indication: MUSCLE SPASTICITY
     Dosage: 150 MG, BID
     Route: 048
     Dates: start: 20131122
  4. LYRICA [Concomitant]
     Indication: PARAESTHESIA
  5. MONTELUKAST [Concomitant]
     Indication: ASTHMA
     Dosage: 10 MG, 5QD4SDO
     Route: 048
     Dates: start: 2000
  6. FORADIL [Concomitant]
     Indication: ASTHMA
     Dosage: 1 DF, BID
     Route: 055
     Dates: start: 2000
  7. VENTOLAIR [Concomitant]
     Indication: ASTHMA
     Dosage: 2 DF, BID
     Route: 055
     Dates: start: 2000

REACTIONS (9)
  - Grand mal convulsion [Not Recovered/Not Resolved]
  - Aura [Not Recovered/Not Resolved]
  - Amnesia [Not Recovered/Not Resolved]
  - Confusional state [Not Recovered/Not Resolved]
  - Somnolence [Not Recovered/Not Resolved]
  - Petit mal epilepsy [Not Recovered/Not Resolved]
  - Alanine aminotransferase increased [Recovered/Resolved]
  - Gamma-glutamyltransferase increased [Unknown]
  - Prescribed underdose [Unknown]
